FAERS Safety Report 10260272 (Version 1)
Quarter: 2014Q2

REPORT INFORMATION
  Report Type: Spontaneous
  Country: US (occurrence: US)
  Receive Date: 20140625
  Receipt Date: 20140625
  Transmission Date: 20141212
  Serious: No
  Sender: FDA-Public Use
  Company Number: US-SA-2014SA050584

PATIENT
  Sex: Female

DRUGS (1)
  1. AUBAGIO [Suspect]
     Indication: MULTIPLE SCLEROSIS
     Route: 065

REACTIONS (3)
  - Dizziness [Unknown]
  - Vertigo [Unknown]
  - Oral dysaesthesia [Unknown]
